FAERS Safety Report 24855634 (Version 1)
Quarter: 2025Q1

REPORT INFORMATION
  Report Type: Spontaneous
  Country: US (occurrence: None)
  Receive Date: 20250116
  Receipt Date: 20250116
  Transmission Date: 20250409
  Serious: Yes (Hospitalization)
  Sender: FDA-CTU
  Company Number: None

PATIENT
  Age: 63 Year
  Sex: Female
  Weight: 70.76 kg

DRUGS (5)
  1. WINREVAIR [Suspect]
     Active Substance: SOTATERCEPT-CSRK
     Dosage: FREQUENCY : EVERY THREE WEEKS;?
     Route: 058
     Dates: start: 202411
  2. TYVASO [Suspect]
     Active Substance: TREPROSTINIL
  3. TYVASO [Concomitant]
     Active Substance: TREPROSTINIL
  4. ADEMPAS [Concomitant]
     Active Substance: RIOCIGUAT
  5. OPSUMIT [Concomitant]
     Active Substance: MACITENTAN

REACTIONS (1)
  - Hypervolaemia [None]

NARRATIVE: CASE EVENT DATE: 20250115
